FAERS Safety Report 4774513-7 (Version None)
Quarter: 2005Q3

REPORT INFORMATION
  Report Type: 
  Country: None (occurrence: None)
  Receive Date: 20050919
  Receipt Date: 20050919
  Transmission Date: 20060218
  Serious: No
  Sender: FDA-Public Use
  Company Number: None

PATIENT
  Age: 40 Year
  Sex: Female
  Weight: 81.6475 kg

DRUGS (1)
  1. ZOLOFT [Suspect]
     Indication: DEPRESSION
     Dosage: 50 MG 1X/DAY PO
     Route: 048
     Dates: start: 19940401, end: 20050909

REACTIONS (11)
  - ABNORMAL DREAMS [None]
  - BALANCE DISORDER [None]
  - DYSGRAPHIA [None]
  - FEELING ABNORMAL [None]
  - GASTROINTESTINAL DISORDER [None]
  - IRRITABILITY [None]
  - MEMORY IMPAIRMENT [None]
  - PARAESTHESIA [None]
  - SCREAMING [None]
  - SPEECH DISORDER [None]
  - THINKING ABNORMAL [None]
